FAERS Safety Report 9191343 (Version 1)
Quarter: 2013Q1

REPORT INFORMATION
  Report Type: Spontaneous
  Country: GB (occurrence: GB)
  Receive Date: 20130326
  Receipt Date: 20130326
  Transmission Date: 20140127
  Serious: Yes (Other)
  Sender: FDA-Public Use
  Company Number: GB-TEVA-392273ISR

PATIENT
  Age: 45 Year
  Sex: Female
  Weight: 55.33 kg

DRUGS (3)
  1. SERTRALINE [Suspect]
     Indication: ANXIETY
     Route: 048
     Dates: start: 20130119
  2. PARACETAMOL [Concomitant]
     Dosage: OCCASIONAL USE
  3. IBUPROFEN [Concomitant]
     Dosage: OCCASIONAL USE

REACTIONS (4)
  - Migraine [Not Recovered/Not Resolved]
  - Visual impairment [Not Recovered/Not Resolved]
  - Migraine with aura [Not Recovered/Not Resolved]
  - Headache [Unknown]
